FAERS Safety Report 10100722 (Version 3)
Quarter: 2014Q2

REPORT INFORMATION
  Report Type: Spontaneous
  Country: US (occurrence: US)
  Receive Date: 20140423
  Receipt Date: 20140602
  Transmission Date: 20141212
  Serious: Yes (Other)
  Sender: FDA-Public Use
  Company Number: US-TEVA-476600USA

PATIENT
  Age: 64 Year
  Sex: Female
  Weight: 66.74 kg

DRUGS (5)
  1. OTFC [Suspect]
     Indication: PAIN
     Route: 048
     Dates: start: 1988
  2. OTFC [Suspect]
     Indication: ATROPHY
  3. OTFC [Suspect]
     Indication: MUSCULAR DYSTROPHY
  4. THYROID [Concomitant]
     Indication: THYROID DISORDER
  5. KLONOPIN [Concomitant]
     Indication: TOURETTE^S DISORDER

REACTIONS (19)
  - Drug dependence [Not Recovered/Not Resolved]
  - Device defective [Not Recovered/Not Resolved]
  - Device issue [Not Recovered/Not Resolved]
  - Adverse reaction [Not Recovered/Not Resolved]
  - Cardiac discomfort [Not Recovered/Not Resolved]
  - Muscular weakness [Not Recovered/Not Resolved]
  - Anxiety [Not Recovered/Not Resolved]
  - Abdominal distension [Not Recovered/Not Resolved]
  - Fear [Not Recovered/Not Resolved]
  - General physical health deterioration [Not Recovered/Not Resolved]
  - Detoxification [Not Recovered/Not Resolved]
  - Feeling abnormal [Not Recovered/Not Resolved]
  - Bedridden [Not Recovered/Not Resolved]
  - Anxiety [Not Recovered/Not Resolved]
  - Weight increased [Not Recovered/Not Resolved]
  - Abdominal distension [Not Recovered/Not Resolved]
  - Spinal disorder [Not Recovered/Not Resolved]
  - Pain [Not Recovered/Not Resolved]
  - Anger [Unknown]
